FAERS Safety Report 5424363-3 (Version None)
Quarter: 2007Q3

REPORT INFORMATION
  Report Type: 
  Country: None (occurrence: None)
  Receive Date: 20070823
  Receipt Date: 20070816
  Transmission Date: 20080115
  Serious: No
  Sender: FDA-Public Use
  Company Number: SE-BAXTER-2007BH007234

PATIENT
  Age: 59 Year
  Sex: Male

DRUGS (1)
  1. IMMUNE GLOBULIN INTRAVENOUS (HUMAN) [Suspect]
     Indication: RADICULOPATHY
     Dosage: DOSE UNIT:UNKNOWN
     Route: 065

REACTIONS (1)
  - RENAL FAILURE [None]
